FAERS Safety Report 16802594 (Version 1)
Quarter: 2019Q3

REPORT INFORMATION
  Report Type: Spontaneous
  Country: US (occurrence: US)
  Receive Date: 20190912
  Receipt Date: 20190912
  Transmission Date: 20191005
  Serious: No
  Sender: FDA-Public Use
  Company Number: US-B.I. PHARMACEUTICALS,INC./RIDGEFIELD-2019-US-101339

PATIENT
  Sex: Female

DRUGS (1)
  1. CATAPRES [Suspect]
     Active Substance: CLONIDINE HYDROCHLORIDE
     Indication: HYPERTENSION
     Route: 065
     Dates: start: 1995

REACTIONS (1)
  - Atrial fibrillation [Not Recovered/Not Resolved]

NARRATIVE: CASE EVENT DATE: 2012
